FAERS Safety Report 7088470-4 (Version None)
Quarter: 2010Q4

REPORT INFORMATION
  Report Type: 
  Country: None (occurrence: None)
  Receive Date: 20101108
  Receipt Date: 20101029
  Transmission Date: 20110411
  Serious: Yes (Death, Other)
  Sender: FDA-Public Use
  Company Number: CN-ROCHE-738076

PATIENT

DRUGS (9)
  1. MYCOPHENOLATE MOFETIL [Suspect]
     Indication: PROPHYLAXIS AGAINST GRAFT VERSUS HOST DISEASE
     Dosage: FROM DAY 29 TO ENGRAFTMENT
     Route: 048
  2. CYCLOSPORINE [Suspect]
     Indication: PROPHYLAXIS AGAINST GRAFT VERSUS HOST DISEASE
     Dosage: FROM DAY 9
     Route: 042
  3. METHOTREXATE [Suspect]
     Indication: PROPHYLAXIS AGAINST GRAFT VERSUS HOST DISEASE
     Dosage: ON DAY 11
     Route: 042
  4. METHOTREXATE [Suspect]
     Dosage: ON DAYS 13 AND 16
     Route: 042
  5. BUSULFAN [Suspect]
     Dosage: EVERY 6 HOURS FOR 12 HOURS
     Route: 042
  6. CYCLOPHOSPHAMIDE [Suspect]
     Dosage: DOSE: 1.8 G/M2/DAY
     Route: 065
  7. SULFAMETHOXAZOLE [Concomitant]
     Indication: ANTIBIOTIC PROPHYLAXIS
     Route: 048
  8. FLUCONAZOLE [Concomitant]
     Indication: ANTIBIOTIC PROPHYLAXIS
     Route: 048
  9. ACYCLOVIR SODIUM [Concomitant]
     Indication: ANTIBIOTIC PROPHYLAXIS
     Route: 048

REACTIONS (7)
  - ACUTE GRAFT VERSUS HOST DISEASE [None]
  - ACUTE GRAFT VERSUS HOST DISEASE IN INTESTINE [None]
  - DIARRHOEA [None]
  - DISEASE RECURRENCE [None]
  - ENGRAFT FAILURE [None]
  - PNEUMONIA [None]
  - THROMBOTIC MICROANGIOPATHY [None]
